FAERS Safety Report 6119707-3 (Version None)
Quarter: 2009Q1

REPORT INFORMATION
  Report Type: 
  Country: None (occurrence: None)
  Receive Date: 20090316
  Receipt Date: 20090304
  Transmission Date: 20090719
  Serious: Yes (Death, Life-Threatening, Hospitalization, Disabling, Other)
  Sender: FDA-Public Use
  Company Number: PT-PFIZER INC-2009159083

PATIENT

DRUGS (5)
  1. SUNITINIB MALATE [Suspect]
     Indication: BREAST CANCER
     Dosage: 37.5 MG, 1X/DAY
     Route: 048
     Dates: start: 20081025, end: 20090118
  2. DOCETAXEL [Suspect]
     Indication: BREAST CANCER
     Dosage: 132 MG, EVERY 3 WEEKS
     Route: 042
     Dates: start: 20081024, end: 20081120
  3. OMEPRAZOLE [Concomitant]
     Indication: DYSPEPSIA
     Dosage: 20 MG, 1X/DAY
     Dates: start: 20081002
  4. LESCOL XL [Concomitant]
     Indication: DYSLIPIDAEMIA
     Dosage: 1 TAB, 1X/DAY
     Route: 048
     Dates: start: 20081002
  5. BROMAZEPAM [Concomitant]
     Indication: ANXIETY
     Dosage: 1.5 MG, 1X/DAY
     Dates: start: 20081002

REACTIONS (6)
  - ANORECTAL CELLULITIS [None]
  - NECROTISING FASCIITIS [None]
  - PNEUMONIA [None]
  - RENAL DISORDER [None]
  - RESPIRATORY DISORDER [None]
  - SEPTIC SHOCK [None]
